FAERS Safety Report 9532173 (Version 2)
Quarter: 2014Q1

REPORT INFORMATION
  Report Type: Spontaneous
  Country: HU (occurrence: HU)
  Receive Date: 20130918
  Receipt Date: 20140328
  Transmission Date: 20141002
  Serious: Yes (Disabling)
  Sender: FDA-Public Use
  Company Number: HU-009507513-1309HUN004943

PATIENT
  Age: 76 Year
  Sex: Male

DRUGS (9)
  1. VELMETIA [Suspect]
     Indication: DIABETES MELLITUS
     Dosage: 50/1000 MG 1 DF, QD, FIXED DOSE COMBINATION
     Route: 048
     Dates: start: 20130827, end: 201309
  2. COVEREX AS [Concomitant]
     Indication: HYPERTENSION
     Dosage: 5 MG, QD, MORNING
     Route: 048
     Dates: start: 2005
  3. COVEREX AS KOMB [Concomitant]
     Indication: HYPERTENSION
     Dosage: 5MG/1.25MG 1XDAILY, EVENING
     Route: 048
     Dates: start: 2005
  4. NORMODIPINE [Concomitant]
     Indication: HYPERTENSION
     Dosage: 5 MG, BID
     Route: 048
     Dates: start: 2005
  5. ASPIRIN [Concomitant]
     Dosage: 100 MG, QD
     Route: 048
     Dates: start: 2005
  6. CLOPIDOGREL [Concomitant]
     Dosage: 75 MG, QD
     Route: 048
     Dates: start: 2005
  7. OLICARD [Concomitant]
     Dosage: 40 MG, QD, MORNINGS
     Dates: start: 2005
  8. TRENTAL [Concomitant]
     Dosage: 400 MG, BID
     Dates: start: 2005
  9. GLIPREX [Concomitant]
     Indication: BLOOD GLUCOSE INCREASED
     Dosage: 1X3MG ON MORNINGS

REACTIONS (3)
  - Muscular weakness [Not Recovered/Not Resolved]
  - Gait disturbance [Not Recovered/Not Resolved]
  - Walking aid user [Not Recovered/Not Resolved]
